FAERS Safety Report 8613490-5 (Version None)
Quarter: 2012Q3

REPORT INFORMATION
  Report Type: 
  Country: None (occurrence: None)
  Receive Date: 20120823
  Receipt Date: 20120723
  Transmission Date: 20120928
  Serious: No
  Sender: FDA-Public Use
  Company Number: US-009507513-1206USA02817

PATIENT

DRUGS (1)
  1. PROPECIA [Suspect]
     Indication: PRODUCT USED FOR UNKNOWN INDICATION
     Dosage: 1 MG, UNK
     Route: 048

REACTIONS (3)
  - EJACULATION DISORDER [None]
  - PROSTATIC DISORDER [None]
  - ERECTILE DYSFUNCTION [None]
